FAERS Safety Report 8086217-6 (Version None)
Quarter: 2012Q1

REPORT INFORMATION
  Report Type: 
  Country: None (occurrence: None)
  Receive Date: 20120128
  Receipt Date: 20110414
  Transmission Date: 20120608
  Serious: No
  Sender: FDA-Public Use
  Company Number: US-ABBOTT-11P-163-0719667-00

PATIENT
  Age: 45 Year
  Sex: Female

DRUGS (7)
  1. HUMIRA [Suspect]
     Indication: PSORIATIC ARTHROPATHY
     Dates: start: 20080801, end: 20100101
  2. PRINIVIL [Concomitant]
     Indication: HYPERTENSION
  3. LYRICA [Concomitant]
     Indication: NERVE INJURY
  4. TRENTAL [Concomitant]
     Indication: CARDIOVASCULAR DISORDER
  5. MULTI-VITAMIN [Concomitant]
     Indication: PRODUCT USED FOR UNKNOWN INDICATION
  6. METFFORMIN HYDROCHLORIDE [Concomitant]
     Indication: DIABETES MELLITUS
  7. HUMIRA [Suspect]
     Indication: PSORIASIS
     Dates: start: 20101201, end: 20110301

REACTIONS (1)
  - DRUG INEFFECTIVE [None]
